FAERS Safety Report 6191132-9 (Version None)
Quarter: 2009Q2

REPORT INFORMATION
  Report Type: 
  Country: None (occurrence: None)
  Receive Date: 20090515
  Receipt Date: 20090507
  Transmission Date: 20091009
  Serious: Yes (Other)
  Sender: FDA-Public Use
  Company Number: PHHO2004CA12919

PATIENT
  Sex: Male

DRUGS (24)
  1. CLOZARIL [Suspect]
     Indication: SCHIZOPHRENIA
     Dosage: UNK, UNK
     Route: 048
     Dates: start: 20040609
  2. CLOZARIL [Suspect]
     Dosage: 250 MG/DAILY
     Route: 048
  3. CLOZARIL [Suspect]
     Dosage: 650MG AT BED TIME
  4. SEROQUEL [Concomitant]
     Dosage: 700 MG/DAY
  5. LIPITOR [Concomitant]
     Dosage: 10 MG/DAILY
  6. CELEBREX [Concomitant]
     Dosage: 400 MG/DAILY
  7. AVANDIA [Concomitant]
     Dosage: 4 MG, QID
  8. HALDOL [Concomitant]
     Dosage: 8 MG, QD
  9. CLOMIPRAMINE HCL [Concomitant]
     Dosage: 125 MG/AM
  10. CLOMIPRAMINE HCL [Concomitant]
     Dosage: 100MG/DAY
  11. IMOVANE [Concomitant]
     Dosage: 15 MG H.S.
  12. IMOVANE [Concomitant]
     Dosage: 7.5MG/DAY
  13. NIZATIDINE [Concomitant]
     Dosage: 150 MG, BID
  14. PARSITAN [Concomitant]
     Dosage: 100 MG, QD
  15. CLONAZEPAM [Concomitant]
     Dosage: 4 MG, QD
  16. CLONAZEPAM [Concomitant]
     Dosage: 0.5 MG, QID
  17. PROCYCLIDINE HYDROCHLORIDE 2MG TAB [Concomitant]
     Dosage: 5 MG, BID
  18. SERTRALINE HCL [Concomitant]
     Dosage: 150MG/DAY
  19. SERTRALINE HCL [Concomitant]
     Dosage: 200 MG EVERY SUPPER
  20. RISPERDAL [Concomitant]
     Dosage: 2 MG
  21. INVEGA [Concomitant]
     Dosage: 3 MG EVERY SUPPER
  22. LORAZEPAM [Concomitant]
     Indication: PANIC ATTACK
     Dosage: 1-2MG EVERY 20 MINS AS NEEDED
  23. MINIRIN [Concomitant]
  24. AVANDAMET [Concomitant]

REACTIONS (11)
  - ANAEMIA [None]
  - BLOOD GLUCOSE INCREASED [None]
  - DELUSION [None]
  - DISORIENTATION [None]
  - DYSARTHRIA [None]
  - HAEMOGLOBIN DECREASED [None]
  - HALLUCINATION, AUDITORY [None]
  - HYPONATRAEMIA [None]
  - LUNG DISORDER [None]
  - PSYCHOTIC DISORDER [None]
  - SEDATION [None]
